FAERS Safety Report 7597850-X (Version None)
Quarter: 2011Q3

REPORT INFORMATION
  Report Type: 
  Country: None (occurrence: None)
  Receive Date: 20110708
  Receipt Date: 20110629
  Transmission Date: 20111222
  Serious: Yes (Hospitalization)
  Sender: FDA-Public Use
  Company Number: US-CEPHALON-2011003543

PATIENT
  Sex: Female
  Weight: 65 kg

DRUGS (5)
  1. AVONEX [Concomitant]
  2. PROVIGIL [Suspect]
     Indication: FATIGUE
     Route: 048
     Dates: end: 20100101
  3. LAMICTAL [Concomitant]
  4. MORPHINE [Concomitant]
  5. EFFEXOR [Concomitant]

REACTIONS (3)
  - HYPERLIPIDAEMIA [None]
  - IMMUNODEFICIENCY [None]
  - ABDOMINAL PAIN [None]
